FAERS Safety Report 15635381 (Version 2)
Quarter: 2018Q4

REPORT INFORMATION
  Report Type: Report from Study
  Country: GB (occurrence: GB)
  Receive Date: 20181120
  Receipt Date: 20181123
  Transmission Date: 20190205
  Serious: Yes (Other)
  Sender: FDA-Public Use
  Company Number: GB-AUROBINDO-AUR-APL-2016-09195

PATIENT
  Age: 83 Year
  Sex: Female

DRUGS (1)
  1. ALENDRONIC ACID TABLETS 70MG [Suspect]
     Active Substance: ALENDRONIC ACID
     Indication: PRODUCT USED FOR UNKNOWN INDICATION
     Dosage: 70 MG, FOR 1 WEEK FOR 45 MONTHS UNK
     Route: 048

REACTIONS (1)
  - Osteonecrosis of jaw [Unknown]
